FAERS Safety Report 8414076-8 (Version None)
Quarter: 2012Q2

REPORT INFORMATION
  Report Type: 
  Country: None (occurrence: None)
  Receive Date: 20120605
  Receipt Date: 20120528
  Transmission Date: 20120825
  Serious: Yes (Hospitalization)
  Sender: FDA-Public Use
  Company Number: CA-JNJFOC-20120521436

PATIENT
  Age: 2 Year
  Sex: Male
  Weight: 10.89 kg

DRUGS (3)
  1. ACETAMINOPHEN [Suspect]
     Route: 048
  2. ACETAMINOPHEN [Suspect]
     Indication: ACCIDENTAL EXPOSURE
     Route: 048
     Dates: start: 20120527, end: 20120527
  3. INHALER NOS [Concomitant]
     Indication: RESPIRATORY DISORDER
     Route: 055
     Dates: start: 20110101

REACTIONS (2)
  - ACCIDENTAL DRUG INTAKE BY CHILD [None]
  - PRODUCT PACKAGING ISSUE [None]
